FAERS Safety Report 6739174-6 (Version None)
Quarter: 2010Q2

REPORT INFORMATION
  Report Type: 
  Country: None (occurrence: None)
  Receive Date: 20100525
  Receipt Date: 20100514
  Transmission Date: 20101027
  Serious: Yes (Other)
  Sender: FDA-Public Use
  Company Number: US-JNJFOC-20100507288

PATIENT
  Sex: Female
  Weight: 36.4 kg

DRUGS (9)
  1. INFLIXIMAB [Suspect]
     Indication: INFLAMMATORY BOWEL DISEASE
     Route: 042
  2. AZATHIOPRINE SODIUM [Concomitant]
  3. ZINC [Concomitant]
  4. FERROUS SULFATE TAB [Concomitant]
  5. OMEPRAZOLE [Concomitant]
  6. CALCIUM [Concomitant]
  7. RANITIDINE [Concomitant]
  8. BENADRYL [Concomitant]
     Indication: PREMEDICATION
  9. STEROIDS NOS [Concomitant]
     Indication: PREMEDICATION
     Route: 042

REACTIONS (3)
  - CHEST DISCOMFORT [None]
  - INFUSION RELATED REACTION [None]
  - THROAT TIGHTNESS [None]
